FAERS Safety Report 19885195 (Version 1)
Quarter: 2021Q3

REPORT INFORMATION
  Report Type: Spontaneous
  Country: US (occurrence: US)
  Receive Date: 20210924
  Receipt Date: 20210924
  Transmission Date: 20211014
  Serious: Yes (Other)
  Sender: FDA-Public Use
  Company Number: None

PATIENT
  Age: 67 Year
  Sex: Female
  Weight: 61.69 kg

DRUGS (8)
  1. MAXZIDE [Concomitant]
     Active Substance: HYDROCHLOROTHIAZIDE\TRIAMTERENE
  2. GINKO [Concomitant]
     Active Substance: GINKGO
  3. IORN [Concomitant]
  4. COLLAGEN [Concomitant]
     Active Substance: COLLAGEN
  5. METHADONE HYDROCHLORIDE 10MG TABLETS [Suspect]
     Active Substance: METHADONE HYDROCHLORIDE
     Indication: PAIN MANAGEMENT
     Dosage: ?          QUANTITY:4 PER DAY ;?
     Route: 048
     Dates: start: 20210312
  6. A,C,D,E [Concomitant]
  7. ADDERALL [Concomitant]
     Active Substance: AMPHETAMINE ASPARTATE\AMPHETAMINE SULFATE\DEXTROAMPHETAMINE SACCHARATE\DEXTROAMPHETAMINE SULFATE
  8. CAL/MAG/ZINC [Concomitant]

REACTIONS (17)
  - Ill-defined disorder [None]
  - Pain [None]
  - Weight decreased [None]
  - Feeling of despair [None]
  - Mental disorder [None]
  - Tremor [None]
  - Feeling abnormal [None]
  - Withdrawal syndrome [None]
  - Herpes zoster [None]
  - Product substitution issue [None]
  - Stress [None]
  - Insomnia [None]
  - Feeling hot [None]
  - Night sweats [None]
  - Muscle spasms [None]
  - Adverse drug reaction [None]
  - Irritable bowel syndrome [None]

NARRATIVE: CASE EVENT DATE: 20210312
